FAERS Safety Report 8867356 (Version 1)
Quarter: 2012Q4

REPORT INFORMATION
  Report Type: 
  Country: US (occurrence: US)
  Receive Date: 20121025
  Receipt Date: 20121025
  Transmission Date: 20130627
  Serious: No
  Sender: FDA-Public Use
  Company Number: US-AMGEN-USASP2012016340

PATIENT
  Age: 64 Year
  Sex: Male
  Weight: 139.23 kg

DRUGS (12)
  1. ENBREL [Suspect]
     Indication: PRODUCT USED FOR UNKNOWN INDICATION
     Dosage: 25 mg, 2 times/wk
     Route: 058
  2. AZOR                               /00595201/ [Concomitant]
     Dosage: UNK
  3. FISH OIL [Concomitant]
     Dosage: UNK
  4. FLUOXETINE [Concomitant]
     Dosage: 40 mg, UNK
  5. PRAVASTATIN [Concomitant]
     Dosage: 80 mg, UNK
  6. CENTRUM SILVER                     /01292501/ [Concomitant]
     Dosage: UNK
  7. CARVEDILOL [Concomitant]
     Dosage: 12.5 mg, UNK
  8. BENICAR [Concomitant]
     Dosage: 5 mg, UNK
  9. BABY ASPIRIN [Concomitant]
     Dosage: 81 mg, UNK
  10. NIASPAN [Concomitant]
     Dosage: 500 mg, UNK
  11. ACIPHEX [Concomitant]
     Dosage: 20 mg, UNK
  12. OXYBUTYNIN [Concomitant]
     Dosage: 5 mg, UNK

REACTIONS (1)
  - Nasopharyngitis [Unknown]
